FAERS Safety Report 9782290 (Version 1)
Quarter: 2013Q4

REPORT INFORMATION
  Report Type: Spontaneous
  Country: IT (occurrence: IT)
  Receive Date: 20131226
  Receipt Date: 20131226
  Transmission Date: 20140711
  Serious: Yes (Other)
  Sender: FDA-Public Use
  Company Number: IT-UCBSA-106650

PATIENT
  Age: 6 Month
  Sex: Female
  Weight: 7 kg

DRUGS (1)
  1. GLYCERYL TRINITRATE [Suspect]
     Route: 062
     Dates: start: 20130708, end: 20130708

REACTIONS (2)
  - Accidental exposure to product [Recovered/Resolved]
  - Malaise [Recovering/Resolving]
